FAERS Safety Report 16329290 (Version 2)
Quarter: 2019Q2

REPORT INFORMATION
  Report Type: Spontaneous
  Country: NL (occurrence: NL)
  Receive Date: 20190520
  Receipt Date: 20190523
  Transmission Date: 20190711
  Serious: Yes (Hospitalization, Other)
  Sender: FDA-Public Use
  Company Number: NL-LUPIN PHARMACEUTICALS INC.-2019-02964

PATIENT
  Age: 28 Year
  Sex: Male

DRUGS (2)
  1. TRAMADOL. [Suspect]
     Active Substance: TRAMADOL
     Indication: BACK PAIN
     Dosage: UNK
     Route: 065
     Dates: start: 2017
  2. TRAMADOL. [Suspect]
     Active Substance: TRAMADOL
     Indication: PAIN
     Dosage: 1400 MILLIGRAM, SINGLE
     Route: 048
     Dates: start: 2017, end: 2017

REACTIONS (11)
  - Blood pressure increased [Recovered/Resolved]
  - Respiratory distress [Recovered/Resolved]
  - Generalised tonic-clonic seizure [Recovered/Resolved]
  - Incoherent [Recovered/Resolved]
  - Syncope [Recovered/Resolved]
  - Restlessness [Recovering/Resolving]
  - Depressed level of consciousness [Recovered/Resolved]
  - Intentional product misuse [Unknown]
  - Heart rate increased [Recovered/Resolved]
  - Toxicity to various agents [Recovered/Resolved]
  - Overdose [Unknown]

NARRATIVE: CASE EVENT DATE: 2017
